FAERS Safety Report 19906019 (Version 3)
Quarter: 2021Q4

REPORT INFORMATION
  Report Type: Spontaneous
  Country: US (occurrence: US)
  Receive Date: 20211001
  Receipt Date: 20211015
  Transmission Date: 20220303
  Serious: Yes (Hospitalization, Other)
  Sender: FDA-Public Use
  Company Number: US-BAYER-2021A220663

PATIENT
  Age: 51 Year
  Sex: Male

DRUGS (3)
  1. KOGENATE FS [Suspect]
     Active Substance: ANTIHEMOPHILIC FACTOR, HUMAN RECOMBINANT
     Dosage: 7000 IU, UNK
     Route: 042
  2. KOGENATE FS [Suspect]
     Active Substance: ANTIHEMOPHILIC FACTOR, HUMAN RECOMBINANT
     Dosage: 10 DF; 10 DOSES SO FAR TO TREAT RIGHT KNEE BLEED
     Route: 042
     Dates: start: 202109
  3. KOGENATE FS [Suspect]
     Active Substance: ANTIHEMOPHILIC FACTOR, HUMAN RECOMBINANT
     Dosage: 7000 IU, PRN
     Route: 042

REACTIONS (6)
  - Herpes zoster [None]
  - Haemarthrosis [None]
  - Malaise [None]
  - Post herpetic neuralgia [None]
  - Confusional state [None]
  - Ligament sprain [None]

NARRATIVE: CASE EVENT DATE: 20210901
